FAERS Safety Report 4320026-6 (Version None)
Quarter: 2004Q1

REPORT INFORMATION
  Report Type: 
  Country: None (occurrence: None)
  Receive Date: 20040317
  Receipt Date: 20040303
  Transmission Date: 20041129
  Serious: Yes (Death, Other)
  Sender: FDA-Public Use
  Company Number: 2004014777

PATIENT
  Age: 35 Year
  Sex: Female

DRUGS (3)
  1. VORICONAZOLE (VORICONAZOLE) [Suspect]
     Indication: ANTIFUNGAL PROPHYLAXIS
  2. METHYLPREDNISOLONE [Concomitant]
  3. TACROLIMUS (TACROLIMUS) [Concomitant]

REACTIONS (2)
  - LUNG CONSOLIDATION [None]
  - ZYGOMYCOSIS [None]
